FAERS Safety Report 8096290-7 (Version None)
Quarter: 2012Q1

REPORT INFORMATION
  Report Type: 
  Country: None (occurrence: None)
  Receive Date: 20120129
  Receipt Date: 20111222
  Transmission Date: 20120608
  Serious: No
  Sender: FDA-Public Use
  Company Number: US-ABBOTT-11P-163-0885970-00

PATIENT
  Sex: Female

DRUGS (10)
  1. MOBIC [Concomitant]
     Indication: PAIN
  2. FISH OIL [Concomitant]
     Indication: BLOOD CHOLESTEROL INCREASED
  3. ALLEGRA [Concomitant]
     Indication: HYPERSENSITIVITY
  4. BENICAR [Concomitant]
     Indication: HYPERTENSION
  5. HUMIRA [Suspect]
     Indication: RHEUMATOID ARTHRITIS
     Dates: start: 20070101
  6. POTASSIUM CHLORIDE [Concomitant]
     Indication: HYPOKALAEMIA
  7. LEUCOVORIN CALCIUM [Concomitant]
     Indication: RHEUMATOID ARTHRITIS
  8. LASIX [Concomitant]
     Indication: FLUID RETENTION
  9. METHOTREXATE [Concomitant]
     Indication: RHEUMATOID ARTHRITIS
  10. HYDROCODONE BITARTRATE [Concomitant]
     Indication: PAIN

REACTIONS (1)
  - INJECTION SITE HAEMATOMA [None]
